FAERS Safety Report 8500461-2 (Version None)
Quarter: 2012Q3

REPORT INFORMATION
  Report Type: 
  Country: None (occurrence: None)
  Receive Date: 20120710
  Receipt Date: 20120705
  Transmission Date: 20120928
  Serious: Yes (Disabling)
  Sender: FDA-Public Use
  Company Number: JP-GLAXOSMITHKLINE-B0813269A

PATIENT
  Age: 48 Year
  Sex: Male

DRUGS (4)
  1. DEPAKENE [Concomitant]
     Dosage: 600MG PER DAY
     Route: 048
  2. LAMICTAL [Suspect]
     Indication: PRODUCT USED FOR UNKNOWN INDICATION
     Dosage: 50MG PER DAY
     Route: 048
  3. SEROQUEL [Concomitant]
     Dosage: 400MG PER DAY
     Route: 048
  4. HALCION [Concomitant]
     Dosage: .5MG PER DAY
     Route: 048

REACTIONS (3)
  - ORAL MUCOSA EROSION [None]
  - RASH [None]
  - DRUG ERUPTION [None]
